FAERS Safety Report 25631797 (Version 2)
Quarter: 2025Q3

REPORT INFORMATION
  Report Type: Spontaneous
  Country: GB (occurrence: GB)
  Receive Date: 20250801
  Receipt Date: 20250814
  Transmission Date: 20251020
  Serious: Yes (Disabling, Other)
  Sender: AZURITY PHARMACEUTICALS
  Company Number: GB-AZURITY PHARMACEUTICALS, INC.-AZR202507-002336

PATIENT
  Age: 51 Year
  Sex: Female
  Weight: 62 kg

DRUGS (3)
  1. TRIPTORELIN [Suspect]
     Active Substance: TRIPTORELIN
     Indication: Uterine leiomyoma
     Route: 065
     Dates: start: 20250224, end: 20250714
  2. TIBOLONE [Concomitant]
     Active Substance: TIBOLONE
     Indication: Hormone therapy
     Route: 065
     Dates: start: 20250214
  3. CODEINE [Concomitant]
     Active Substance: CODEINE
     Indication: Pain
     Route: 065
     Dates: start: 20250627

REACTIONS (12)
  - Arthralgia [Not Recovered/Not Resolved]
  - Pain in extremity [Not Recovered/Not Resolved]
  - Insomnia [Not Recovered/Not Resolved]
  - Bone pain [Not Recovered/Not Resolved]
  - Coccydynia [Not Recovered/Not Resolved]
  - Neck pain [Not Recovered/Not Resolved]
  - Hyperventilation [Not Recovered/Not Resolved]
  - Confusional state [Not Recovered/Not Resolved]
  - Mobility decreased [Not Recovered/Not Resolved]
  - Gingival bleeding [Not Recovered/Not Resolved]
  - Depressed mood [Not Recovered/Not Resolved]
  - Hot flush [Not Recovered/Not Resolved]

NARRATIVE: CASE EVENT DATE: 20250228
